FAERS Safety Report 11447969 (Version 1)
Quarter: 2015Q3

REPORT INFORMATION
  Report Type: Spontaneous
  Country: US (occurrence: US)
  Receive Date: 20150831
  Receipt Date: 20150831
  Transmission Date: 20151125
  Serious: Yes (Other)
  Sender: FDA-Public Use
  Company Number: US-ELI_LILLY_AND_COMPANY-US200905002475

PATIENT
  Age: 78 Year
  Sex: Male

DRUGS (9)
  1. ENALAPRIL [Concomitant]
     Active Substance: ENALAPRIL
     Dosage: 10 MG, EACH EVENING
  2. NEXIUM [Concomitant]
     Active Substance: ESOMEPRAZOLE MAGNESIUM
  3. FLOMAX [Concomitant]
     Active Substance: TAMSULOSIN HYDROCHLORIDE
  4. ENALAPRIL [Concomitant]
     Active Substance: ENALAPRIL
     Dosage: 10 MG, DAILY (1/D)
  5. ENALAPRIL [Concomitant]
     Active Substance: ENALAPRIL
     Dosage: 5 MG, EACH EVENING
  6. ENALAPRIL [Concomitant]
     Active Substance: ENALAPRIL
     Dosage: 20 MG, EACH EVENING
  7. CYMBALTA [Suspect]
     Active Substance: DULOXETINE HYDROCHLORIDE
     Indication: PAIN
     Dosage: 30 MG, UNK
     Dates: start: 20090407, end: 20090415
  8. ALLOPURINOL. [Concomitant]
     Active Substance: ALLOPURINOL
  9. ZOCOR [Concomitant]
     Active Substance: SIMVASTATIN

REACTIONS (8)
  - Dry mouth [Recovered/Resolved]
  - Headache [Not Recovered/Not Resolved]
  - Vision blurred [Recovering/Resolving]
  - Blood pressure increased [Recovering/Resolving]
  - Insomnia [Recovering/Resolving]
  - Panic attack [Not Recovered/Not Resolved]
  - Heart rate increased [Recovering/Resolving]
  - Drug ineffective [Recovered/Resolved]

NARRATIVE: CASE EVENT DATE: 200904
